FAERS Safety Report 6342137-6 (Version None)
Quarter: 2009Q3

REPORT INFORMATION
  Report Type: 
  Country: None (occurrence: None)
  Receive Date: 20090903
  Receipt Date: 20090903
  Transmission Date: 20100115
  Serious: Yes (Other)
  Sender: FDA-Public Use
  Company Number: None

PATIENT
  Age: 81 Year
  Sex: Female
  Weight: 83.0083 kg

DRUGS (3)
  1. BENICAR [Suspect]
     Indication: HYPERTENSION
     Dosage: TAKE 1 TABLET EVERY DAY
     Dates: start: 20090707, end: 20090817
  2. NORVASC [Concomitant]
  3. WELCHOL [Concomitant]

REACTIONS (2)
  - ASTHENIA [None]
  - HYPERTENSION [None]
